FAERS Safety Report 6754852-0 (Version None)
Quarter: 2010Q2

REPORT INFORMATION
  Report Type: 
  Country: None (occurrence: None)
  Receive Date: 20100603
  Receipt Date: 20100602
  Transmission Date: 20101027
  Serious: No
  Sender: FDA-Public Use
  Company Number: BE-MERCK-1005BEL00003

PATIENT
  Sex: Female
  Weight: 90 kg

DRUGS (1)
  1. COSOPT [Suspect]
     Indication: INTRAOCULAR PRESSURE INCREASED
     Route: 047
     Dates: start: 20100506, end: 20100514

REACTIONS (1)
  - DERMATITIS ALLERGIC [None]
